FAERS Safety Report 15473898 (Version 2)
Quarter: 2018Q4

REPORT INFORMATION
  Report Type: Spontaneous
  Country: JP (occurrence: JP)
  Receive Date: 20181008
  Receipt Date: 20181012
  Transmission Date: 20190205
  Serious: Yes (Hospitalization, Other)
  Sender: FDA-Public Use
  Company Number: JP-IMPAX LABORATORIES, INC-2018-IPXL-03250

PATIENT
  Age: 87 Year
  Sex: Male

DRUGS (5)
  1. PRAVASTATIN SODIUM. [Concomitant]
     Active Substance: PRAVASTATIN SODIUM
     Indication: HYPERLIPIDAEMIA
     Dosage: 10 MG, DAILY
     Route: 065
  2. GALANTAMINE HYDROBROMIDE ER [Suspect]
     Active Substance: GALANTAMINE HYDROBROMIDE
     Dosage: 16 MG, DAILY
     Route: 065
  3. GALANTAMINE HYDROBROMIDE ER [Suspect]
     Active Substance: GALANTAMINE HYDROBROMIDE
     Indication: DEMENTIA ALZHEIMER^S TYPE
     Dosage: 8 MG, DAILY
     Route: 065
  4. AMBROXOL HYDROCHLORIDE [Concomitant]
     Active Substance: AMBROXOL HYDROCHLORIDE
     Indication: BRONCHITIS CHRONIC
     Dosage: 45 MG, DAILY
     Route: 065
  5. GALANTAMINE HYDROBROMIDE ER [Suspect]
     Active Substance: GALANTAMINE HYDROBROMIDE
     Dosage: 12 MG, TWICE A DAY (AT 0800 HOURS AND 2000 HOURS)
     Route: 065

REACTIONS (3)
  - Gait disturbance [Unknown]
  - Cholinergic syndrome [Recovered/Resolved]
  - Fall [Unknown]
